FAERS Safety Report 6561979-5 (Version None)
Quarter: 2010Q1

REPORT INFORMATION
  Report Type: 
  Country: None (occurrence: None)
  Receive Date: 20100130
  Receipt Date: 20091215
  Transmission Date: 20100710
  Serious: No
  Sender: FDA-Public Use
  Company Number: US-ABBOTT-09P-163-0561148-00

PATIENT
  Sex: Female
  Weight: 59.02 kg

DRUGS (24)
  1. HUMIRA [Suspect]
     Indication: RHEUMATOID ARTHRITIS
     Route: 058
     Dates: start: 20060101, end: 20090101
  2. HUMIRA [Suspect]
     Route: 058
     Dates: start: 20091214
  3. FLEXERIL [Concomitant]
     Indication: MYALGIA
  4. FLEXERIL [Concomitant]
     Indication: FIBROMYALGIA
  5. ULTRAM [Concomitant]
     Indication: MYALGIA
     Dosage: 40MG FORM STRENGTH
     Route: 048
  6. ULTRAM [Concomitant]
     Indication: FIBROMYALGIA
  7. MIACALCIN [Concomitant]
     Indication: DRUG USE FOR UNKNOWN INDICATION
     Route: 048
  8. SPIRIVA [Concomitant]
     Indication: CHRONIC OBSTRUCTIVE PULMONARY DISEASE
     Route: 055
  9. ADVAIR DISKUS 100/50 [Concomitant]
     Indication: CHRONIC OBSTRUCTIVE PULMONARY DISEASE
     Dosage: FORM: 500/50
     Route: 055
  10. PROTONIX [Concomitant]
     Indication: GASTROOESOPHAGEAL REFLUX DISEASE
     Route: 048
  11. PROTONIX [Concomitant]
  12. LIBRIUM [Concomitant]
     Indication: ANXIOLYTIC THERAPY
     Route: 048
  13. LIBRIUM [Concomitant]
     Indication: PAIN
  14. SINGULAIR [Concomitant]
     Indication: CHRONIC OBSTRUCTIVE PULMONARY DISEASE
     Route: 048
  15. ZANTAC [Concomitant]
     Indication: GASTROOESOPHAGEAL REFLUX DISEASE
     Dosage: 1.5 TABLETS ONCE DAILY
     Route: 048
  16. TOPAMAX [Concomitant]
     Indication: MIGRAINE
     Route: 048
  17. PROZAC [Concomitant]
     Indication: DEPRESSION
     Route: 048
  18. PROAIR HFA [Concomitant]
     Indication: CHRONIC OBSTRUCTIVE PULMONARY DISEASE
     Dosage: 2 PUFFS QID OR Q 4HRS PRN
     Route: 055
  19. AXERT [Concomitant]
     Indication: MIGRAINE
     Route: 048
  20. LIBREX [Concomitant]
     Indication: GASTROINTESTINAL DISORDER
  21. EXERT [Concomitant]
     Indication: MIGRAINE
  22. HYDROCODONE [Concomitant]
     Indication: DRUG USE FOR UNKNOWN INDICATION
     Dosage: TWICE DAILY OR PRN
     Route: 048
  23. FLEXERIL [Concomitant]
     Indication: BONE PAIN
     Route: 048
  24. COMBIVENT [Concomitant]
     Indication: DRUG USE FOR UNKNOWN INDICATION
     Route: 055

REACTIONS (8)
  - BONE PAIN [None]
  - COUGH [None]
  - FEELING ABNORMAL [None]
  - MYCOBACTERIAL INFECTION [None]
  - PNEUMONIA [None]
  - PRODUCTIVE COUGH [None]
  - TUBERCULOSIS [None]
  - WEIGHT DECREASED [None]
